FAERS Safety Report 6165881-2 (Version None)
Quarter: 2009Q2

REPORT INFORMATION
  Report Type: 
  Country: None (occurrence: None)
  Receive Date: 20090423
  Receipt Date: 20090420
  Transmission Date: 20091009
  Serious: Yes (Other)
  Sender: FDA-Public Use
  Company Number: GB-MERCK-0904GBR00065

PATIENT
  Age: 62 Year
  Sex: Male
  Weight: 101 kg

DRUGS (7)
  1. VYTORIN [Suspect]
     Indication: CEREBROVASCULAR ACCIDENT PROPHYLAXIS
     Route: 048
     Dates: start: 20090209, end: 20090329
  2. AMLODIPINE [Concomitant]
     Route: 065
  3. ASPIRIN [Concomitant]
     Route: 065
  4. IPRATROPIUM BROMIDE [Concomitant]
  5. INDAPAMIDE [Concomitant]
     Route: 065
  6. FLUTICASONE PROPIONATE AND SALMETEROL XINAFOATE [Concomitant]
     Route: 065
  7. SIMVASTATIN [Concomitant]
     Indication: CEREBROVASCULAR ACCIDENT PROPHYLAXIS
     Route: 048
     Dates: start: 20050101, end: 20090101

REACTIONS (1)
  - BLOOD BILIRUBIN INCREASED [None]
